FAERS Safety Report 16765508 (Version 1)
Quarter: 2019Q3

REPORT INFORMATION
  Report Type: Report from Study
  Country: US (occurrence: US)
  Receive Date: 20190903
  Receipt Date: 20190903
  Transmission Date: 20191005
  Serious: Yes (Other)
  Sender: FDA-Public Use
  Company Number: US-TEVA-2019-US-1101915

PATIENT
  Sex: Female

DRUGS (2)
  1. COPAXONE [Suspect]
     Active Substance: GLATIRAMER ACETATE
  2. COPAXONE [Suspect]
     Active Substance: GLATIRAMER ACETATE
     Route: 058

REACTIONS (10)
  - Back pain [Unknown]
  - Chills [Unknown]
  - Loss of consciousness [Unknown]
  - Paraesthesia [Unknown]
  - Heart rate increased [Unknown]
  - Hypoaesthesia [Unknown]
  - Injection site haemorrhage [Unknown]
  - Flushing [Unknown]
  - Pain in extremity [Unknown]
  - Diplegia [Recovered/Resolved]
